FAERS Safety Report 19878339 (Version 1)
Quarter: 2021Q3

REPORT INFORMATION
  Report Type: Report from Study
  Country: US (occurrence: US)
  Receive Date: 20210924
  Receipt Date: 20210924
  Transmission Date: 20211014
  Serious: Yes (Other)
  Sender: FDA-Public Use
  Company Number: US-SHIRE-US201923828

PATIENT
  Sex: Female

DRUGS (1)
  1. HUMAN IMMUNOGLOBULIN; HYALURONIDASE [Suspect]
     Active Substance: HUMAN IMMUNOGLOBULIN G\HYALURONIDASE RECOMBINANT HUMAN
     Indication: IMMUNODEFICIENCY COMMON VARIABLE
     Route: 065

REACTIONS (8)
  - Foot fracture [Unknown]
  - Lung disorder [Unknown]
  - Product dose omission issue [Unknown]
  - Fall [Unknown]
  - Ligament sprain [Unknown]
  - Weight fluctuation [Unknown]
  - Abdominal pain upper [Unknown]
  - Infusion site extravasation [Unknown]
